FAERS Safety Report 25826199 (Version 3)
Quarter: 2025Q4

REPORT INFORMATION
  Report Type: Report from Study
  Country: US (occurrence: US)
  Receive Date: 20250919
  Receipt Date: 20251014
  Transmission Date: 20260117
  Serious: Yes (Hospitalization, Other)
  Sender: ABBVIE
  Company Number: US-ABBVIE-6466441

PATIENT
  Age: 70 Year
  Sex: Female

DRUGS (2)
  1. CREON [Suspect]
     Active Substance: PANCRELIPASE AMYLASE\PANCRELIPASE LIPASE\PANCRELIPASE PROTEASE
     Indication: Product used for unknown indication
     Dosage: 10 PILLS A DAY
     Route: 048
     Dates: start: 2003, end: 2005
  2. CREON [Suspect]
     Active Substance: PANCRELIPASE AMYLASE\PANCRELIPASE LIPASE\PANCRELIPASE PROTEASE
     Indication: Product used for unknown indication
     Route: 048
     Dates: start: 20230410

REACTIONS (10)
  - Hospice care [Unknown]
  - Pancreatic disorder [Unknown]
  - Diarrhoea [Unknown]
  - Feeding disorder [Unknown]
  - Chronic obstructive pulmonary disease [Unknown]
  - Arthritis [Unknown]
  - Stress fracture [Unknown]
  - Spinal operation [Unknown]
  - Cholelithiasis [Unknown]
  - Wheelchair user [Unknown]

NARRATIVE: CASE EVENT DATE: 20050101
